FAERS Safety Report 9616173 (Version 1)
Quarter: 2013Q4

REPORT INFORMATION
  Report Type: Spontaneous
  Country: US (occurrence: US)
  Receive Date: 20131011
  Receipt Date: 20131011
  Transmission Date: 20140711
  Serious: No
  Sender: FDA-Public Use
  Company Number: US-PURDUE-USA-2013-0099994

PATIENT
  Age: 60 Year
  Sex: Male

DRUGS (1)
  1. BUTRANS [Suspect]
     Indication: PAIN
     Dosage: 5 MCG/HR, WEEKLY
     Route: 062
     Dates: start: 201303

REACTIONS (8)
  - Drug withdrawal syndrome [Not Recovered/Not Resolved]
  - Extra dose administered [Unknown]
  - Hyperhidrosis [Not Recovered/Not Resolved]
  - Dyspnoea [Not Recovered/Not Resolved]
  - Chest discomfort [Not Recovered/Not Resolved]
  - Muscle spasms [Unknown]
  - Pain [Unknown]
  - Product adhesion issue [Unknown]
